FAERS Safety Report 18078469 (Version 1)
Quarter: 2020Q3

REPORT INFORMATION
  Report Type: Spontaneous
  Country: IE (occurrence: IE)
  Receive Date: 20200728
  Receipt Date: 20200728
  Transmission Date: 20201103
  Serious: Yes (Other)
  Sender: FDA-Public Use
  Company Number: IE-STRIDES ARCOLAB LIMITED-2020SP008469

PATIENT
  Age: 32 Year
  Sex: Female

DRUGS (1)
  1. DICLOFENAC [Suspect]
     Active Substance: DICLOFENAC
     Indication: PRODUCT USED FOR UNKNOWN INDICATION
     Dosage: HIGH?STRENGTH, APPLIED GENEROUS AMOUNTS TO HER UPPER CHEST, ARMS AND BACK
     Route: 061

REACTIONS (7)
  - Skin exfoliation [Recovered/Resolved]
  - Scab [Recovered/Resolved]
  - Skin plaque [Recovered/Resolved]
  - Blister [Recovered/Resolved]
  - Rash erythematous [Recovered/Resolved]
  - Pemphigus [Recovered/Resolved]
  - Rash pruritic [Recovered/Resolved]
